FAERS Safety Report 7663550-0 (Version None)
Quarter: 2011Q3

REPORT INFORMATION
  Report Type: 
  Country: None (occurrence: None)
  Receive Date: 20110805
  Receipt Date: 20100817
  Transmission Date: 20111222
  Serious: No
  Sender: FDA-Public Use
  Company Number: US-ABBOTT-10P-163-0664452-00

PATIENT
  Sex: Male

DRUGS (7)
  1. METFORMIN HCL [Concomitant]
     Indication: PRODUCT USED FOR UNKNOWN INDICATION
  2. ASPIRIN [Concomitant]
     Indication: PRODUCT USED FOR UNKNOWN INDICATION
  3. NIASPAN [Suspect]
     Indication: BLOOD CHOLESTEROL INCREASED
     Dosage: AT BEDTIME
  4. NIASPAN [Suspect]
     Indication: BLOOD TRIGLYCERIDES
     Dosage: TWO 1000MG AT BEDTIME
  5. LISINOPRIL [Concomitant]
     Indication: PRODUCT USED FOR UNKNOWN INDICATION
  6. ACTOS [Concomitant]
     Indication: PRODUCT USED FOR UNKNOWN INDICATION
  7. AMLODIPINE [Concomitant]
     Indication: PRODUCT USED FOR UNKNOWN INDICATION

REACTIONS (4)
  - FLUSHING [None]
  - JOINT SWELLING [None]
  - ERYTHEMA [None]
  - OEDEMA PERIPHERAL [None]
